FAERS Safety Report 4283974-1 (Version None)
Quarter: 2004Q1

REPORT INFORMATION
  Report Type: 
  Country: None (occurrence: None)
  Receive Date: 20040202
  Receipt Date: 20040202
  Transmission Date: 20041129
  Serious: No
  Sender: FDA-Public Use
  Company Number: None

PATIENT

DRUGS (1)
  1. ZYVOX [Suspect]
     Dosage: IV
     Route: 042
     Dates: start: 20040130, end: 20040131

REACTIONS (1)
  - MEDICATION ERROR [None]
